FAERS Safety Report 16076349 (Version 1)
Quarter: 2019Q1

REPORT INFORMATION
  Report Type: Spontaneous
  Country: CN (occurrence: CN)
  Receive Date: 20190315
  Receipt Date: 20190315
  Transmission Date: 20190418
  Serious: Yes (Other)
  Sender: FDA-Public Use
  Company Number: CN-SA-2019SA066714

PATIENT
  Age: 62 Year
  Sex: Female
  Weight: 48 kg

DRUGS (2)
  1. ELOXATIN [Suspect]
     Active Substance: OXALIPLATIN
     Indication: COLON CANCER
     Dosage: 150 MG, QD
     Route: 041
     Dates: start: 20190212, end: 20190212
  2. GLUCOSE INJECTION [Concomitant]
     Active Substance: DEXTROSE
     Indication: COLON CANCER
     Dosage: 250 ML, QD
     Route: 041
     Dates: start: 20190212, end: 20190212

REACTIONS (1)
  - Cytopenia [Recovering/Resolving]

NARRATIVE: CASE EVENT DATE: 20190301
